FAERS Safety Report 15928785 (Version 1)
Quarter: 2019Q1

REPORT INFORMATION
  Report Type: Spontaneous
  Country: US (occurrence: US)
  Receive Date: 20190206
  Receipt Date: 20190206
  Transmission Date: 20190417
  Serious: No
  Sender: FDA-Public Use
  Company Number: US-DSJP-DSU-2019-101788

PATIENT

DRUGS (3)
  1. UNKNOWN DIABETES MEDICATION [Concomitant]
     Active Substance: UNSPECIFIED INGREDIENT
     Indication: DIABETES MELLITUS
     Dosage: UNK
     Route: 065
  2. BENICAR [Suspect]
     Active Substance: OLMESARTAN MEDOXOMIL
     Dosage: 40 MG, QD
     Route: 048
     Dates: start: 201901
  3. BENICAR [Suspect]
     Active Substance: OLMESARTAN MEDOXOMIL
     Indication: HYPERTENSION
     Dosage: 40 MG, QD
     Route: 048
     Dates: start: 201801, end: 201901

REACTIONS (3)
  - Tongue discomfort [Recovered/Resolved]
  - Dysgeusia [Recovered/Resolved]
  - Breath odour [Recovered/Resolved]

NARRATIVE: CASE EVENT DATE: 201812
